FAERS Safety Report 15401166 (Version 1)
Quarter: 2018Q3

REPORT INFORMATION
  Report Type: Spontaneous
  Country: US (occurrence: US)
  Receive Date: 20180914
  Receipt Date: 20180914
  Transmission Date: 20181010
  Serious: No
  Sender: FDA-Public Use
  Company Number: None

PATIENT
  Age: 28 Year
  Sex: Female
  Weight: 81.45 kg

DRUGS (13)
  1. DOXYCYCLINE. [Concomitant]
     Active Substance: DOXYCYCLINE
  2. BENADRYL [Concomitant]
     Active Substance: DIPHENHYDRAMINE HYDROCHLORIDE
  3. EXCEDRIN [Concomitant]
     Active Substance: ACETAMINOPHEN\ASPIRIN\CAFFEINE
  4. FLUCONAZOLE TABLET USP 150 MG, DIFLUCAN [Suspect]
     Active Substance: FLUCONAZOLE
     Indication: FUNGAL INFECTION
     Dosage: ?          QUANTITY:1 TABLET(S);?
     Route: 048
     Dates: start: 20180913, end: 20180913
  5. BENZONATATE. [Concomitant]
     Active Substance: BENZONATATE
  6. FLECINIDE [Concomitant]
     Active Substance: FLECAINIDE
  7. IBPROPHEN [Concomitant]
  8. MELETONIN [Concomitant]
  9. TUMS [Concomitant]
     Active Substance: CALCIUM CARBONATE
  10. FISH OIL [Concomitant]
     Active Substance: FISH OIL
  11. TYLONAL [Concomitant]
  12. AMITRIPTYLIN [Concomitant]
     Active Substance: AMITRIPTYLINE
  13. PREDNISONE. [Concomitant]
     Active Substance: PREDNISONE

REACTIONS (4)
  - Abdominal discomfort [None]
  - Headache [None]
  - Vomiting [None]
  - Back pain [None]

NARRATIVE: CASE EVENT DATE: 20180913
